FAERS Safety Report 17445773 (Version 6)
Quarter: 2020Q2

REPORT INFORMATION
  Report Type: Spontaneous
  Country: US (occurrence: US)
  Receive Date: 20200221
  Receipt Date: 20200413
  Transmission Date: 20200713
  Serious: Yes (Life-Threatening, Hospitalization, Other)
  Sender: FDA-Public Use
  Company Number: US-PFIZER INC-2020077765

PATIENT
  Age: 71 Year
  Sex: Male

DRUGS (3)
  1. XANAX [Suspect]
     Active Substance: ALPRAZOLAM
     Indication: ANXIETY
     Dosage: 1 MG, 4X/DAY (TAKE 1 TABLET BY MOUTH FOUR TIMES DAILY AS NEEDED FOR ANXIETY, MUST LAST 30 DAYS)
     Route: 048
  2. ALPRAZOLAM. [Suspect]
     Active Substance: ALPRAZOLAM
     Indication: ANXIETY
     Dosage: 1 MG, (FOUR TIMES A DAY OR EVERY SIX HOURS)
     Route: 048
  3. ALPRAZOLAM. [Suspect]
     Active Substance: ALPRAZOLAM
     Indication: POST-TRAUMATIC STRESS DISORDER

REACTIONS (33)
  - Neoplasm malignant [Not Recovered/Not Resolved]
  - Post-traumatic stress disorder [Unknown]
  - Spinal fracture [Unknown]
  - Back pain [Not Recovered/Not Resolved]
  - Weight decreased [Not Recovered/Not Resolved]
  - Renal impairment [Unknown]
  - Bladder injury [Unknown]
  - Pulmonary fibrosis [Unknown]
  - Infrequent bowel movements [Not Recovered/Not Resolved]
  - Dysuria [Unknown]
  - Anxiety [Unknown]
  - Lung disorder [Not Recovered/Not Resolved]
  - Thinking abnormal [Not Recovered/Not Resolved]
  - Confusional state [Unknown]
  - Cataract [Unknown]
  - Malaria [Unknown]
  - Penile pain [Not Recovered/Not Resolved]
  - Flashback [Unknown]
  - Renal cancer [Unknown]
  - Nightmare [Unknown]
  - Cartilage injury [Not Recovered/Not Resolved]
  - Blindness [Unknown]
  - Dysphemia [Not Recovered/Not Resolved]
  - Fall [Not Recovered/Not Resolved]
  - Condition aggravated [Not Recovered/Not Resolved]
  - Pain [Not Recovered/Not Resolved]
  - Tooth loss [Not Recovered/Not Resolved]
  - Vitreous floaters [Not Recovered/Not Resolved]
  - Tremor [Not Recovered/Not Resolved]
  - Insomnia [Unknown]
  - Feeding disorder [Not Recovered/Not Resolved]
  - Gingival bleeding [Not Recovered/Not Resolved]
  - Muscle atrophy [Unknown]
